FAERS Safety Report 12302024 (Version 2)
Quarter: 2016Q3

REPORT INFORMATION
  Report Type: Spontaneous
  Country: US (occurrence: US)
  Receive Date: 20160425
  Receipt Date: 20160706
  Transmission Date: 20161109
  Serious: Yes (Hospitalization, Other)
  Sender: FDA-Public Use
  Company Number: US-PFIZER INC-2016225495

PATIENT
  Age: 60 Year
  Sex: Male

DRUGS (13)
  1. TESTOSTERONE CYPIONATE. [Suspect]
     Active Substance: TESTOSTERONE CYPIONATE
     Indication: FATIGUE
  2. ANDRODERM [Suspect]
     Active Substance: TESTOSTERONE
     Indication: HORMONE REPLACEMENT THERAPY
     Dosage: UNK, DAILY
     Dates: start: 20080722, end: 20080821
  3. TESTOSTERONE CYPIONATE. [Suspect]
     Active Substance: TESTOSTERONE CYPIONATE
     Indication: ASTHENIA
  4. ANDROGEL [Suspect]
     Active Substance: TESTOSTERONE
     Indication: HORMONE REPLACEMENT THERAPY
     Dosage: UNK, DAILY
     Dates: start: 20120924, end: 20121024
  5. HYDROXYZINE [Concomitant]
     Active Substance: HYDROXYZINE\HYDROXYZINE HYDROCHLORIDE
     Indication: ANXIETY
     Dosage: UNK
     Dates: start: 1998
  6. DEPO-TESTOSTERONE [Suspect]
     Active Substance: TESTOSTERONE CYPIONATE
     Indication: HORMONE REPLACEMENT THERAPY
     Dosage: UNK, EVERY TWO WEEKS
     Dates: start: 20110121, end: 20131030
  7. LEVOTHYROXINE. [Concomitant]
     Active Substance: LEVOTHYROXINE
     Indication: THYROID DISORDER
     Dosage: UNK
     Dates: start: 2005
  8. TESTOSTERONE CYPIONATE. [Suspect]
     Active Substance: TESTOSTERONE CYPIONATE
     Indication: HORMONE REPLACEMENT THERAPY
     Dosage: UNK, EVERY TWO WEEKS
     Dates: start: 20080910, end: 20100103
  9. WARFARIN [Concomitant]
     Active Substance: WARFARIN
     Indication: THROMBOSIS PROPHYLAXIS
     Dosage: UNK
     Dates: start: 2013
  10. SIMVASTATIN. [Concomitant]
     Active Substance: SIMVASTATIN
     Indication: BLOOD CHOLESTEROL ABNORMAL
     Dosage: UNK
     Dates: start: 2000
  11. LORTAB [Concomitant]
     Active Substance: ACETAMINOPHEN\HYDROCODONE BITARTRATE
     Indication: PAIN
     Dosage: UNK
     Dates: start: 2004
  12. TESTOSTERONE CYPIONATE. [Suspect]
     Active Substance: TESTOSTERONE CYPIONATE
     Indication: LOSS OF LIBIDO
  13. BUPROPION. [Concomitant]
     Active Substance: BUPROPION
     Indication: ANXIETY
     Dosage: UNK
     Dates: start: 1997

REACTIONS (1)
  - Pulmonary embolism [Unknown]

NARRATIVE: CASE EVENT DATE: 20140417
